FAERS Safety Report 9484267 (Version 2)
Quarter: 2013Q3

REPORT INFORMATION
  Report Type: Spontaneous
  Country: JP (occurrence: JP)
  Receive Date: 20130828
  Receipt Date: 20130828
  Transmission Date: 20140515
  Serious: Yes (Other)
  Sender: FDA-Public Use
  Company Number: JP-ROCHE-1243917

PATIENT
  Age: 6 Decade
  Sex: Female

DRUGS (2)
  1. RIVOTRIL [Suspect]
     Indication: CONVULSION
     Dosage: DOSAGE IS UNCERTAIN.
     Route: 048
  2. RIVOTRIL [Suspect]
     Indication: ANXIETY

REACTIONS (7)
  - Appendicitis [Unknown]
  - Musculoskeletal stiffness [Unknown]
  - Gait disturbance [Unknown]
  - Hypotension [Unknown]
  - Vision blurred [Unknown]
  - Muscle tightness [Unknown]
  - Constipation [Unknown]
